FAERS Safety Report 4289552-2 (Version None)
Quarter: 2004Q1

REPORT INFORMATION
  Report Type: 
  Country: None (occurrence: None)
  Receive Date: 20040126
  Receipt Date: 20030926
  Transmission Date: 20041129
  Serious: No
  Sender: FDA-Public Use
  Company Number: USA030948413

PATIENT
  Age: 75 Year
  Sex: Female

DRUGS (2)
  1. FORTEO [Suspect]
     Indication: OSTEOPOROSIS
     Dates: start: 20030925
  2. PREDNISONE [Concomitant]

REACTIONS (2)
  - NERVOUSNESS [None]
  - PSYCHOMOTOR HYPERACTIVITY [None]
